FAERS Safety Report 5613603-3 (Version None)
Quarter: 2008Q1

REPORT INFORMATION
  Report Type: 
  Country: None (occurrence: None)
  Receive Date: 20080205
  Receipt Date: 20080125
  Transmission Date: 20080703
  Serious: Yes (Disabling)
  Sender: FDA-Public Use
  Company Number: PHHY2008JP01046

PATIENT
  Age: 69 Year
  Sex: Female

DRUGS (4)
  1. ZOMETA [Suspect]
     Indication: METASTASES TO BONE
     Dosage: 4 MG/DAY
     Route: 042
     Dates: start: 20060724, end: 20070709
  2. AREDIA [Suspect]
     Dosage: UNK, UNK
     Route: 042
     Dates: start: 20050101, end: 20060624
  3. ARIMIDEX [Concomitant]
     Dosage: 2 MG, UNK
     Route: 048
     Dates: start: 20050901
  4. TAXOL [Concomitant]
     Dosage: 60 MG, UNK
     Route: 042
     Dates: start: 20050309, end: 20050912

REACTIONS (5)
  - MASTICATION DISORDER [None]
  - ORAL PAIN [None]
  - ORAL SURGERY [None]
  - OSTEONECROSIS [None]
  - TOOTH EXTRACTION [None]
